FAERS Safety Report 9669720 (Version 1)
Quarter: 2013Q4

REPORT INFORMATION
  Report Type: Spontaneous
  Country: SG (occurrence: SG)
  Receive Date: 20131105
  Receipt Date: 20131105
  Transmission Date: 20140711
  Serious: Yes (Death)
  Sender: FDA-Public Use
  Company Number: SG-BAYER-2013-131537

PATIENT
  Sex: Female

DRUGS (1)
  1. STIVARGA [Suspect]
     Indication: COLORECTAL CANCER METASTATIC
     Dosage: TOTAL DAILY DOSE: 120

REACTIONS (1)
  - Colorectal cancer metastatic [Fatal]
